FAERS Safety Report 21655915 (Version 3)
Quarter: 2023Q1

REPORT INFORMATION
  Report Type: Report from Study
  Country: CA (occurrence: CA)
  Receive Date: 20221129
  Receipt Date: 20230106
  Transmission Date: 20230417
  Serious: Yes (Other)
  Sender: FDA-Public Use
  Company Number: CA-BAUSCH-BL-2022-025732

PATIENT
  Sex: Female
  Weight: 86.168 kg

DRUGS (3)
  1. CONTRAVE [Suspect]
     Active Substance: BUPROPION HYDROCHLORIDE\NALTREXONE HYDROCHLORIDE
     Indication: Weight control
     Dosage: 90/8MG (1 IN 24 HR)
     Route: 048
     Dates: start: 202209, end: 2022
  2. CONTRAVE [Suspect]
     Active Substance: BUPROPION HYDROCHLORIDE\NALTREXONE HYDROCHLORIDE
     Dosage: 90/8MG, 2TABS AM AND 1TAB PM (2 TABLETS IN THE MORNING AND 1 AT BEDTIME)
     Route: 048
     Dates: start: 2022, end: 20221111
  3. CONTRAVE [Suspect]
     Active Substance: BUPROPION HYDROCHLORIDE\NALTREXONE HYDROCHLORIDE
     Dosage: 90/8MG, MORNING AND EVENING 1 TABLET EACH
     Route: 048
     Dates: start: 2022, end: 2022

REACTIONS (14)
  - Angina pectoris [Recovered/Resolved]
  - Chest discomfort [Recovered/Resolved]
  - Hypotension [Recovered/Resolved]
  - Musculoskeletal stiffness [Recovered/Resolved]
  - Pollakiuria [Unknown]
  - Ear discomfort [Recovered/Resolved]
  - Panic attack [Recovered/Resolved]
  - Dry mouth [Recovered/Resolved]
  - Palpitations [Recovered/Resolved]
  - Constipation [Recovered/Resolved]
  - Malaise [Recovered/Resolved]
  - Heart rate increased [Recovered/Resolved]
  - Tremor [Recovered/Resolved]
  - Therapy cessation [Unknown]

NARRATIVE: CASE EVENT DATE: 20220101
